FAERS Safety Report 10971424 (Version 1)
Quarter: 2015Q1

REPORT INFORMATION
  Report Type: Spontaneous
  Country: CH (occurrence: CH)
  Receive Date: 20150331
  Receipt Date: 20150331
  Transmission Date: 20150721
  Serious: Yes (Hospitalization)
  Sender: FDA-Public Use
  Company Number: CH-TEVA-550654ISR

PATIENT
  Age: 86 Year
  Sex: Female

DRUGS (12)
  1. PLAVIX [Suspect]
     Active Substance: CLOPIDOGREL BISULFATE
     Dosage: 75 MILLIGRAM DAILY; CONTINUING
     Route: 048
  2. LANTUS [Concomitant]
     Active Substance: INSULIN GLARGINE
     Dosage: CONTINUING
     Route: 065
  3. PANTOZOL [Concomitant]
     Active Substance: PANTOPRAZOLE SODIUM
     Dosage: CONTINUING
     Route: 065
  4. MINITRAN [Concomitant]
     Active Substance: NITROGLYCERIN
     Dosage: CONTINUING
     Route: 065
  5. QUETIAPINE [Concomitant]
     Active Substance: QUETIAPINE
     Dosage: CONTINUING
     Route: 065
  6. OLFEN-75 RETARD DEPOTABS [Suspect]
     Active Substance: DICLOFENAC SODIUM
     Dosage: 150 MILLIGRAM DAILY;
     Route: 048
     Dates: start: 20150102, end: 20150220
  7. DIAMICRON [Concomitant]
     Active Substance: GLICLAZIDE
     Dosage: CONTINUING
     Route: 065
  8. STRUCTUM [Concomitant]
     Active Substance: SODIUM CHONDROITIN SULFATE
     Dosage: CONTINUING
     Route: 065
  9. DAFALGAN [Concomitant]
     Active Substance: ACETAMINOPHEN
     Dosage: 3 GRAM DAILY; CONTINUING
     Route: 048
  10. BILOL [Concomitant]
     Active Substance: BISOPROLOL
     Dosage: CONTINUING
     Route: 065
  11. TOREM [Concomitant]
     Active Substance: TORSEMIDE
     Dosage: CONTINUING
     Route: 065
  12. GLUCOBAY [Concomitant]
     Active Substance: ACARBOSE
     Dosage: CONTINUING
     Route: 065

REACTIONS (5)
  - Anaemia macrocytic [None]
  - Proctalgia [Unknown]
  - Melaena [Recovering/Resolving]
  - Anaemia [Recovering/Resolving]
  - Gastritis erosive [Recovering/Resolving]

NARRATIVE: CASE EVENT DATE: 201502
